FAERS Safety Report 21236326 (Version 1)
Quarter: 2022Q3

REPORT INFORMATION
  Report Type: Spontaneous
  Country: US (occurrence: US)
  Receive Date: 20220822
  Receipt Date: 20220822
  Transmission Date: 20221026
  Serious: Yes (Life-Threatening, Hospitalization, Other)
  Sender: FDA-Public Use
  Company Number: US-MLMSERVICE-20220802-3710367-1

PATIENT
  Age: 55 Year
  Sex: Male

DRUGS (3)
  1. VANCOMYCIN [Suspect]
     Active Substance: VANCOMYCIN
     Indication: Device related infection
     Dosage: UNKNOWN
     Route: 065
  2. VANCOMYCIN [Suspect]
     Active Substance: VANCOMYCIN
     Indication: Propionibacterium infection
  3. VANCOMYCIN [Suspect]
     Active Substance: VANCOMYCIN
     Indication: Corynebacterium infection

REACTIONS (6)
  - Drug-induced liver injury [Recovering/Resolving]
  - Hepatitis [Recovering/Resolving]
  - Sepsis [Unknown]
  - Acute kidney injury [Unknown]
  - Drug reaction with eosinophilia and systemic symptoms [Recovering/Resolving]
  - Thrombocytopenia [Unknown]
